FAERS Safety Report 7357668-X (Version None)
Quarter: 2011Q1

REPORT INFORMATION
  Report Type: 
  Country: None (occurrence: None)
  Receive Date: 20110317
  Receipt Date: 20110308
  Transmission Date: 20110831
  Serious: Yes (Hospitalization)
  Sender: FDA-Public Use
  Company Number: CN-JNJFOC-20110303617

PATIENT
  Age: 75 Year
  Sex: Female

DRUGS (3)
  1. TOPAMAX [Suspect]
     Indication: EPILEPSY
     Route: 048
  2. DEPAKENE [Concomitant]
     Indication: EPILEPSY
     Route: 065
  3. TOPAMAX [Suspect]
     Route: 048

REACTIONS (3)
  - DECREASED APPETITE [None]
  - HOSPITALISATION [None]
  - HYPERTENSION [None]
